FAERS Safety Report 22283950 (Version 1)
Quarter: 2023Q2

REPORT INFORMATION
  Report Type: Spontaneous
  Country: US (occurrence: None)
  Receive Date: 20230503
  Receipt Date: 20230503
  Transmission Date: 20230721
  Serious: Yes (Other)
  Sender: FDA-Public Use
  Company Number: None

PATIENT
  Age: 91 Year
  Sex: Female
  Weight: 62.6 kg

DRUGS (2)
  1. CEFDINIR [Suspect]
     Active Substance: CEFDINIR
     Indication: Urinary tract infection bacterial
     Dosage: FREQUENCY : TWICE A DAY;?
     Route: 048
  2. AMLODIPINE BESYLATE [Concomitant]
     Active Substance: AMLODIPINE BESYLATE

REACTIONS (4)
  - Rash [None]
  - Pruritus [None]
  - Pain [None]
  - Vaginal disorder [None]

NARRATIVE: CASE EVENT DATE: 20230410
